FAERS Safety Report 9906965 (Version 2)
Quarter: 2014Q1

REPORT INFORMATION
  Report Type: Spontaneous
  Country: US (occurrence: US)
  Receive Date: 20140218
  Receipt Date: 20140218
  Transmission Date: 20141002
  Serious: No
  Sender: FDA-Public Use
  Company Number: US-GILEAD-2012-0053917

PATIENT
  Age: 67 Year
  Sex: Female

DRUGS (1)
  1. LETAIRIS [Suspect]
     Indication: PULMONARY HYPERTENSION
     Dosage: UNK

REACTIONS (6)
  - Abdominal distension [Unknown]
  - Dizziness [Unknown]
  - Chest discomfort [Unknown]
  - Abdominal distension [Unknown]
  - Dyspnoea [Unknown]
  - Dyspnoea [Unknown]
